FAERS Safety Report 12209521 (Version 5)
Quarter: 2016Q2

REPORT INFORMATION
  Report Type: Report from Study
  Country: US (occurrence: US)
  Receive Date: 20160324
  Receipt Date: 20160428
  Transmission Date: 20160815
  Serious: Yes (Other)
  Sender: FDA-Public Use
  Company Number: US-AMGEN-USASL2016032983

PATIENT
  Age: 53 Year
  Sex: Female

DRUGS (3)
  1. ENBREL [Suspect]
     Active Substance: ETANERCEPT
     Indication: RHEUMATOID ARTHRITIS
     Dosage: 50 MG, ONCE WEEKLY
     Route: 065
     Dates: start: 20160203, end: 2016
  2. ENBREL [Suspect]
     Active Substance: ETANERCEPT
     Dosage: UNK
     Route: 065
  3. LEVAQUIN [Suspect]
     Active Substance: LEVOFLOXACIN
     Indication: SINUSITIS
     Dosage: UNK
     Route: 065

REACTIONS (18)
  - Mobility decreased [Unknown]
  - Tooth infection [Unknown]
  - Panic attack [Unknown]
  - Skin discolouration [Unknown]
  - Urinary tract infection [Unknown]
  - Infection [Unknown]
  - Wound [Unknown]
  - Rash erythematous [Unknown]
  - Back pain [Unknown]
  - Drug hypersensitivity [Unknown]
  - Episcleritis [Unknown]
  - Intentional underdose [Unknown]
  - Rash [Unknown]
  - Joint fluid drainage [Unknown]
  - Muscle spasms [Unknown]
  - Rash pruritic [Unknown]
  - Joint swelling [Unknown]
  - Sinusitis [Unknown]

NARRATIVE: CASE EVENT DATE: 2016
